FAERS Safety Report 10268321 (Version 1)
Quarter: 2014Q2

REPORT INFORMATION
  Report Type: Spontaneous
  Country: GB (occurrence: GB)
  Receive Date: 20140630
  Receipt Date: 20140630
  Transmission Date: 20141212
  Serious: Yes (Other)
  Sender: FDA-Public Use
  Company Number: GB-B.I. PHARMACEUTICALS,INC./RIDGEFIELD-2014-BI-28557UK

PATIENT
  Age: 60 Year
  Sex: Male
  Weight: 91 kg

DRUGS (12)
  1. PRADAXA [Suspect]
     Indication: PRODUCT USED FOR UNKNOWN INDICATION
     Route: 065
  2. DAPAGLIFLOZIN [Suspect]
     Indication: PRODUCT USED FOR UNKNOWN INDICATION
     Route: 065
  3. TRAMADOL [Suspect]
     Indication: PAIN
     Route: 048
     Dates: start: 2000, end: 20140606
  4. BEZAFIBRATE [Concomitant]
     Route: 065
  5. DOXAZOSIN [Concomitant]
     Route: 065
  6. LANTUS [Concomitant]
     Route: 065
  7. NOVORAPID [Concomitant]
     Route: 065
  8. OMEPRAZOLE [Concomitant]
     Route: 065
  9. RAMIPRIL [Concomitant]
     Route: 065
  10. SALBUTAMOL [Concomitant]
     Route: 065
  11. SALMETEROL [Concomitant]
     Route: 065
  12. TIOTROPIUM [Concomitant]
     Route: 065

REACTIONS (4)
  - Blister [Not Recovered/Not Resolved]
  - Drug interaction [Unknown]
  - Depressed mood [Not Recovered/Not Resolved]
  - Self-injurious ideation [Not Recovered/Not Resolved]
